FAERS Safety Report 6902405-3 (Version None)
Quarter: 2010Q3

REPORT INFORMATION
  Report Type: 
  Country: None (occurrence: None)
  Receive Date: 20100803
  Receipt Date: 20080521
  Transmission Date: 20110219
  Serious: Yes (Other)
  Sender: FDA-Public Use
  Company Number: US-PFIZER INC-2008019191

PATIENT

DRUGS (11)
  1. LYRICA [Suspect]
     Indication: PAIN
     Dates: start: 20070901, end: 20080220
  2. ALL OTHER THERAPEUTIC PRODUCTS [Concomitant]
  3. ZOLPIDEM [Concomitant]
  4. SERTRALINE HYDROCHLORIDE [Concomitant]
  5. COZAAR [Concomitant]
  6. TRAZODONE [Concomitant]
  7. ATENOLOL [Concomitant]
  8. CYMBALTA [Concomitant]
  9. ADVAIR DISKUS 100/50 [Concomitant]
  10. IBANDRONATE SODIUM [Concomitant]
  11. SPIRIVA [Concomitant]

REACTIONS (2)
  - DRUG INEFFECTIVE [None]
  - HYPONATRAEMIA [None]
